FAERS Safety Report 25821131 (Version 1)
Quarter: 2025Q3

REPORT INFORMATION
  Report Type: Spontaneous
  Country: TR (occurrence: TR)
  Receive Date: 20250919
  Receipt Date: 20250919
  Transmission Date: 20251021
  Serious: Yes (Other)
  Sender: ALKEM
  Company Number: TR-ALKEM LABORATORIES LIMITED-IN-ALKEM-2025-08080

PATIENT
  Age: 16 Year
  Sex: Male

DRUGS (11)
  1. DULOXETINE HYDROCHLORIDE [Suspect]
     Active Substance: DULOXETINE HYDROCHLORIDE
     Indication: Generalised anxiety disorder
     Dosage: 30 MILLIGRAM, QD
     Route: 065
  2. ALPRAZOLAM [Concomitant]
     Active Substance: ALPRAZOLAM
     Indication: Generalised anxiety disorder
     Route: 065
  3. CITALOPRAM [Concomitant]
     Active Substance: CITALOPRAM
     Indication: Generalised anxiety disorder
     Route: 065
  4. CLOMIPRAMINE [Concomitant]
     Active Substance: CLOMIPRAMINE
     Indication: Generalised anxiety disorder
     Route: 065
  5. FLUOXETINE [Concomitant]
     Active Substance: FLUOXETINE HYDROCHLORIDE
     Indication: Generalised anxiety disorder
     Route: 065
  6. HYDROXYZINE [Concomitant]
     Active Substance: HYDROXYZINE HYDROCHLORIDE
     Indication: Generalised anxiety disorder
     Route: 065
  7. LORAZEPAM [Concomitant]
     Active Substance: LORAZEPAM
     Indication: Generalised anxiety disorder
     Route: 065
  8. MIRTAZAPINE [Concomitant]
     Active Substance: MIRTAZAPINE
     Indication: Generalised anxiety disorder
     Route: 065
  9. PROPRANOLOL [Concomitant]
     Active Substance: PROPRANOLOL HYDROCHLORIDE
     Indication: Generalised anxiety disorder
     Route: 065
  10. SERTRALINE [Concomitant]
     Active Substance: SERTRALINE HYDROCHLORIDE
     Indication: Generalised anxiety disorder
     Route: 065
  11. VENLAFAXINE [Concomitant]
     Active Substance: VENLAFAXINE HYDROCHLORIDE
     Indication: Generalised anxiety disorder
     Route: 065

REACTIONS (1)
  - Hallucination, visual [Recovered/Resolved]
